FAERS Safety Report 4296249-1 (Version None)
Quarter: 2004Q1

REPORT INFORMATION
  Report Type: 
  Country: None (occurrence: None)
  Receive Date: 20040217
  Receipt Date: 20030929
  Transmission Date: 20041129
  Serious: No
  Sender: FDA-Public Use
  Company Number: US-GLAXOSMITHKLINE-A0427846A

PATIENT
  Age: 56 Year
  Sex: Male

DRUGS (4)
  1. LAMICTAL [Suspect]
     Indication: PAIN MANAGEMENT
     Dosage: 50MG TWICE PER DAY
     Route: 048
     Dates: start: 20030813
  2. VIOXX [Concomitant]
  3. ZOCOR [Concomitant]
  4. WELCHOL [Concomitant]

REACTIONS (1)
  - ASPARTATE AMINOTRANSFERASE INCREASED [None]
